FAERS Safety Report 11870055 (Version 1)
Quarter: 2015Q4

REPORT INFORMATION
  Report Type: Spontaneous
  Country: US (occurrence: None)
  Receive Date: 20151224
  Receipt Date: 20151224
  Transmission Date: 20160305
  Serious: No
  Sender: FDA-Public Use
  Company Number: None

PATIENT
  Age: 54 Year
  Sex: Female

DRUGS (1)
  1. STELARA [Suspect]
     Active Substance: USTEKINUMAB
     Indication: PSORIASIS
     Dosage: WEEK 8 + 4
     Route: 058

REACTIONS (3)
  - Immune system disorder [None]
  - Sinusitis [None]
  - Viral infection [None]

NARRATIVE: CASE EVENT DATE: 201512
